FAERS Safety Report 4735006-6 (Version None)
Quarter: 2005Q3

REPORT INFORMATION
  Report Type: 
  Country: None (occurrence: None)
  Receive Date: 20050804
  Receipt Date: 20050802
  Transmission Date: 20060218
  Serious: Yes (Life-Threatening, Hospitalization)
  Sender: FDA-Public Use
  Company Number: PHBS2005JP11148

PATIENT
  Age: 75 Year
  Sex: Male

DRUGS (5)
  1. DIOVAN [Suspect]
     Route: 048
  2. NORVASC [Concomitant]
     Dosage: 5 MG/DAY
     Route: 048
     Dates: start: 20050101
  3. GASMOTIN [Concomitant]
     Dosage: 5 MG/DAY
     Route: 048
     Dates: start: 20050101
  4. GASPORT [Concomitant]
     Dosage: 20 MG/DAY
     Route: 048
     Dates: start: 20050101
  5. EPADEL [Concomitant]
     Dosage: 600 MG/DAY
     Route: 048
     Dates: start: 20050101

REACTIONS (2)
  - DISSEMINATED INTRAVASCULAR COAGULATION [None]
  - THROMBOCYTOPENIA [None]
